FAERS Safety Report 6635665-7 (Version None)
Quarter: 2010Q1

REPORT INFORMATION
  Report Type: 
  Country: None (occurrence: None)
  Receive Date: 20100315
  Receipt Date: 20100305
  Transmission Date: 20100710
  Serious: Yes (Hospitalization)
  Sender: FDA-Public Use
  Company Number: RO-AMGEN-QUU397517

PATIENT
  Sex: Female
  Weight: 48 kg

DRUGS (3)
  1. ARANESP [Suspect]
     Indication: ANAEMIA OF MALIGNANT DISEASE
     Route: 058
     Dates: start: 20091211
  2. UNSPECIFIED MEDICATION [Concomitant]
     Route: 048
     Dates: start: 20090701
  3. GINGKO BILOBA [Concomitant]
     Route: 048
     Dates: start: 20090701

REACTIONS (4)
  - OEDEMA PERIPHERAL [None]
  - PAIN [None]
  - PELVIC VENOUS THROMBOSIS [None]
  - THROMBOPHLEBITIS SUPERFICIAL [None]
